FAERS Safety Report 5250671-5 (Version None)
Quarter: 2007Q1

REPORT INFORMATION
  Report Type: 
  Country: None (occurrence: None)
  Receive Date: 20070228
  Receipt Date: 20060615
  Transmission Date: 20070707
  Serious: No
  Sender: FDA-Public Use
  Company Number: US-GLAXOSMITHKLINE-A0609148A

PATIENT
  Age: 22 Year

DRUGS (3)
  1. LAMICTAL [Suspect]
     Indication: BIPOLAR DISORDER
     Route: 048
     Dates: start: 20060428, end: 20060510
  2. ZOLOFT [Concomitant]
  3. ZYPREXA [Concomitant]

REACTIONS (2)
  - GINGIVAL BLEEDING [None]
  - ORAL MUCOSAL EXFOLIATION [None]
